FAERS Safety Report 5746301-6 (Version None)
Quarter: 2008Q2

REPORT INFORMATION
  Report Type: 
  Country: None (occurrence: None)
  Receive Date: 20080522
  Receipt Date: 20080512
  Transmission Date: 20081010
  Serious: Yes (Death, Hospitalization)
  Sender: FDA-Public Use
  Company Number: JP-AMGEN-US257659

PATIENT
  Sex: Female

DRUGS (14)
  1. ENBREL [Suspect]
     Indication: RHEUMATOID ARTHRITIS
     Route: 058
     Dates: start: 20050623, end: 20070810
  2. OLMETEC [Suspect]
     Indication: HYPERTENSION
     Route: 048
     Dates: end: 20070813
  3. FAMOTIDINE [Suspect]
     Indication: PROPHYLAXIS
     Route: 048
     Dates: start: 20070413, end: 20070828
  4. NORVASC [Suspect]
     Indication: HYPERTENSION
     Route: 048
     Dates: end: 20070813
  5. LASIX [Suspect]
     Indication: HYPERTENSION
     Route: 048
     Dates: end: 20070826
  6. MUCOSTA [Suspect]
     Indication: PROPHYLAXIS
     Route: 048
     Dates: end: 20070824
  7. PROMID [Suspect]
     Dosage: UNSPECIFIED
     Route: 048
  8. OPALMON [Suspect]
     Indication: SPINAL COLUMN STENOSIS
     Route: 048
     Dates: end: 20070813
  9. LOXONIN [Suspect]
     Indication: RHEUMATOID ARTHRITIS
     Route: 048
     Dates: start: 20070329, end: 20070813
  10. DEPAS [Suspect]
     Dosage: UNSPECIFIED
     Route: 048
  11. ALFACALCIDOL [Suspect]
     Dosage: UNSPECIFIED
     Route: 048
  12. FOSAMAX [Suspect]
     Indication: OSTEOPOROSIS
     Route: 048
  13. PREDONINE [Suspect]
     Indication: RHEUMATOID ARTHRITIS
     Route: 048
     Dates: end: 20070824
  14. RIBALL [Suspect]
     Dosage: UNSPECIFIED
     Route: 048

REACTIONS (3)
  - CONDITION AGGRAVATED [None]
  - INTERSTITIAL LUNG DISEASE [None]
  - LARGE INTESTINE PERFORATION [None]
